FAERS Safety Report 16882289 (Version 1)
Quarter: 2019Q4

REPORT INFORMATION
  Report Type: Spontaneous
  Country: US (occurrence: US)
  Receive Date: 20191003
  Receipt Date: 20191003
  Transmission Date: 20200122
  Serious: Yes (Death)
  Sender: FDA-Public Use
  Company Number: None

PATIENT
  Age: 70 Year
  Sex: Male
  Weight: 103.05 kg

DRUGS (1)
  1. AFINITOR [Suspect]
     Active Substance: EVEROLIMUS
     Indication: END STAGE RENAL DISEASE
     Route: 048
     Dates: start: 20180820, end: 20191003

REACTIONS (1)
  - Death [None]

NARRATIVE: CASE EVENT DATE: 20191003
